FAERS Safety Report 23395181 (Version 2)
Quarter: 2024Q1

REPORT INFORMATION
  Report Type: Spontaneous
  Country: US (occurrence: US)
  Receive Date: 20240112
  Receipt Date: 20240117
  Transmission Date: 20240409
  Serious: No
  Sender: FDA-Public Use
  Company Number: US-AMGEN-USASP2024006074

PATIENT
  Age: 21 Year
  Sex: Female

DRUGS (1)
  1. OTEZLA [Suspect]
     Active Substance: APREMILAST
     Indication: Psoriasis
     Dosage: 10 + 20 + 30 MG, TAKF PFR PACKAGINC, INSTRUCTIONS
     Route: 048
     Dates: start: 20231128

REACTIONS (2)
  - Nausea [Unknown]
  - Headache [Unknown]
